FAERS Safety Report 16541621 (Version 2)
Quarter: 2019Q3

REPORT INFORMATION
  Report Type: Spontaneous
  Country: FR (occurrence: FR)
  Receive Date: 20190708
  Receipt Date: 20190711
  Transmission Date: 20191004
  Serious: No
  Sender: FDA-Public Use
  Company Number: FR-PFIZER INC-2019284708

PATIENT
  Age: 62 Year
  Sex: Female

DRUGS (6)
  1. IPRATROPIUM [Suspect]
     Active Substance: IPRATROPIUM
     Indication: WHEEZING
     Dosage: 3 AEROSOLS
     Route: 055
  2. METHYLPREDNISOLONE SODIUM SUCCINATE. [Suspect]
     Active Substance: METHYLPREDNISOLONE SODIUM SUCCINATE
     Indication: DYSPNOEA
  3. TERBUTALINE [Suspect]
     Active Substance: TERBUTALINE
     Indication: WHEEZING
     Dosage: 3 AEROSOLS
     Route: 055
  4. IPRATROPIUM [Suspect]
     Active Substance: IPRATROPIUM
     Indication: DYSPNOEA
  5. METHYLPREDNISOLONE SODIUM SUCCINATE. [Suspect]
     Active Substance: METHYLPREDNISOLONE SODIUM SUCCINATE
     Indication: WHEEZING
     Dosage: 80 MG, UNK
     Route: 042
  6. TERBUTALINE [Suspect]
     Active Substance: TERBUTALINE
     Indication: DYSPNOEA

REACTIONS (2)
  - Product use in unapproved indication [Unknown]
  - Off label use [Unknown]
